FAERS Safety Report 9369194 (Version 1)
Quarter: 2013Q2

REPORT INFORMATION
  Report Type: Spontaneous
  Country: US (occurrence: None)
  Receive Date: 20130625
  Receipt Date: 20130625
  Transmission Date: 20140414
  Serious: Yes (Death, Hospitalization)
  Sender: FDA-Public Use
  Company Number: None

PATIENT
  Age: 89 None
  Sex: Male
  Weight: 72.58 kg

DRUGS (1)
  1. XARELTO 15MG 1 PERDAY BY MOUTH JANSSEN ORTHO LLC GURABO,PR [Suspect]
     Indication: ANTICOAGULANT THERAPY
     Route: 048
     Dates: start: 20121022, end: 20130107

REACTIONS (1)
  - Renal failure acute [None]
